FAERS Safety Report 4746680-2 (Version None)
Quarter: 2005Q3

REPORT INFORMATION
  Report Type: 
  Country: None (occurrence: None)
  Receive Date: 20050815
  Receipt Date: 20050801
  Transmission Date: 20060218
  Serious: Yes (Other)
  Sender: FDA-Public Use
  Company Number: 2005109810

PATIENT
  Sex: Male
  Weight: 98.8842 kg

DRUGS (6)
  1. GEODON [Suspect]
     Indication: ILL-DEFINED DISORDER
  2. LORAZEPAM [Suspect]
     Indication: ILL-DEFINED DISORDER
  3. HALADOL DECANOATE (HALOPERIDOL DECANOATE) [Concomitant]
  4. RISPERDAL [Concomitant]
  5. ALL TOHTER THERAPEUTIC PRODUCTS ALL TOHTER THERAPEUTIC PRODUCTS) [Concomitant]
  6. PARENTERAL (CALCIUM CHLORIDE HEXAHYDRATE, POTASSIUM CHLORIDE, SODIUM A [Concomitant]

REACTIONS (5)
  - ABASIA [None]
  - APHASIA [None]
  - OVERDOSE [None]
  - SOMNOLENCE [None]
  - VISUAL DISTURBANCE [None]
